FAERS Safety Report 11024826 (Version 1)
Quarter: 2015Q2

REPORT INFORMATION
  Report Type: Spontaneous
  Country: DE (occurrence: None)
  Receive Date: 20150410
  Receipt Date: 20150410
  Transmission Date: 20150821
  Serious: No
  Sender: FDA-Public Use
  Company Number: 1503DEU008659

PATIENT
  Age: 7 Year
  Sex: Female

DRUGS (1)
  1. KEIMAX [Suspect]
     Active Substance: CEFTIBUTEN
     Indication: OROPHARYNGEAL PAIN
     Dates: start: 20150316

REACTIONS (1)
  - Drug ineffective [None]

NARRATIVE: CASE EVENT DATE: 20150317
